FAERS Safety Report 16971855 (Version 1)
Quarter: 2019Q4

REPORT INFORMATION
  Report Type: Spontaneous
  Country: US (occurrence: US)
  Receive Date: 20191029
  Receipt Date: 20191029
  Transmission Date: 20200122
  Serious: Yes (Disabling, Other)
  Sender: FDA-Public Use
  Company Number: US-FRESENIUS KABI-FK201911934

PATIENT
  Age: 57 Year
  Sex: Female

DRUGS (3)
  1. ENOXAPARIN [Suspect]
     Active Substance: ENOXAPARIN
     Indication: ANTICOAGULANT THERAPY
     Dosage: UNKNOWN
     Route: 058
  2. HEPARIN (MANUFACTURER UNKNOWN) [Suspect]
     Active Substance: HEPARIN SODIUM
     Indication: ANTICOAGULANT THERAPY
     Dosage: UNKNOWN
     Route: 058
  3. KETOROLAC TROMETHAMINE INJECTION (MANUFACTURER UNKNOWN) [Suspect]
     Active Substance: KETOROLAC TROMETHAMINE
     Indication: PRODUCT USED FOR UNKNOWN INDICATION
     Dosage: UNKNOWN
     Route: 042

REACTIONS (5)
  - Paraplegia [Not Recovered/Not Resolved]
  - Spinal cord compression [Unknown]
  - Myelomalacia [Unknown]
  - Product prescribing error [Not Recovered/Not Resolved]
  - Spinal epidural haematoma [Unknown]
